FAERS Safety Report 4553791-3 (Version None)
Quarter: 2005Q1

REPORT INFORMATION
  Report Type: 
  Country: None (occurrence: None)
  Receive Date: 20050112
  Receipt Date: 20050112
  Transmission Date: 20050727
  Serious: Yes (Other)
  Sender: FDA-Public Use
  Company Number: None

PATIENT
  Sex: Female

DRUGS (1)
  1. SINEMET [Suspect]
     Dosage: ONE PO TID
     Route: 048
     Dates: start: 20040122, end: 20050105

REACTIONS (2)
  - MUSCLE RIGIDITY [None]
  - TREMOR [None]
